FAERS Safety Report 8741650 (Version 4)
Quarter: 2012Q4

REPORT INFORMATION
  Report Type: 
  Country: US (occurrence: US)
  Receive Date: 20120824
  Receipt Date: 20121220
  Transmission Date: 20130627
  Serious: Yes (Other)
  Sender: FDA-Public Use
  Company Number: US-AMGEN-USASP2012052921

PATIENT
  Sex: Female
  Weight: 55.78 kg

DRUGS (3)
  1. PROLIA [Suspect]
     Indication: OSTEOPOROSIS
     Dosage: 60 mg, q6mo
     Route: 058
     Dates: start: 20120125, end: 20120802
  2. CARBOPLATIN [Concomitant]
  3. ABRAXANE                           /01116001/ [Concomitant]

REACTIONS (1)
  - Osteonecrosis of jaw [Not Recovered/Not Resolved]
